FAERS Safety Report 9260720 (Version 1)
Quarter: 2013Q1

REPORT INFORMATION
  Report Type: Spontaneous
  Country: US (occurrence: None)
  Receive Date: 20121212
  Receipt Date: 20121212
  Transmission Date: 20140127
  Serious: No
  Sender: FDA-Public Use
  Company Number: 1210USA004332

PATIENT
  Sex: Female

DRUGS (3)
  1. VICTRELIS [Suspect]
     Indication: HEPATITIS C
     Dates: start: 20120812
  2. PEGINTRON [Suspect]
     Indication: HEPATITIS C
     Dates: start: 20120714
  3. RIBAVIRIN [Suspect]
     Indication: HEPATITIS C
     Dates: start: 20120714

REACTIONS (7)
  - Oral discomfort [None]
  - Wrong technique in drug usage process [None]
  - Swelling face [None]
  - Odynophagia [None]
  - Tooth fracture [None]
  - Red blood cell count decreased [None]
  - Dysgeusia [None]
